FAERS Safety Report 18482647 (Version 1)
Quarter: 2020Q4

REPORT INFORMATION
  Report Type: Spontaneous
  Country: US (occurrence: US)
  Receive Date: 20201109
  Receipt Date: 20201109
  Transmission Date: 20210114
  Serious: No
  Sender: FDA-Public Use
  Company Number: US-ALLERGAN-2036538US

PATIENT
  Age: 49 Year
  Sex: Female

DRUGS (6)
  1. LO LOESTRIN FE [Suspect]
     Active Substance: ETHINYL ESTRADIOL\NORETHINDRONE ACETATE
     Indication: MENSTRUATION IRREGULAR
  2. MORPHINE SULFATE. [Concomitant]
     Active Substance: MORPHINE SULFATE
     Indication: BACK PAIN
     Dosage: 30 MG, BID
  3. LIDOCAINE. [Concomitant]
     Active Substance: LIDOCAINE
     Indication: BACK PAIN
  4. LO LOESTRIN FE [Suspect]
     Active Substance: ETHINYL ESTRADIOL\NORETHINDRONE ACETATE
     Indication: CONTRACEPTION
     Dosage: UNK
     Route: 048
     Dates: end: 201910
  5. DILAUDID [Concomitant]
     Active Substance: HYDROMORPHONE HYDROCHLORIDE
     Indication: BACK PAIN
     Dosage: 4 MG, PRN
  6. LO LOESTRIN FE [Suspect]
     Active Substance: ETHINYL ESTRADIOL\NORETHINDRONE ACETATE
     Indication: MENORRHAGIA

REACTIONS (2)
  - Amenorrhoea [Unknown]
  - Off label use [Unknown]

NARRATIVE: CASE EVENT DATE: 201910
